FAERS Safety Report 15752348 (Version 1)
Quarter: 2018Q4

REPORT INFORMATION
  Report Type: Spontaneous
  Country: US (occurrence: US)
  Receive Date: 20181221
  Receipt Date: 20181221
  Transmission Date: 20190205
  Serious: Yes (Hospitalization)
  Sender: FDA-Public Use
  Company Number: US-LPDUSPRD-20182377

PATIENT
  Age: 21 Year
  Sex: Female

DRUGS (9)
  1. TPN [Concomitant]
     Active Substance: AMINO ACIDS\DEXTROSE\ELECTROLYTES NOS\SOYBEAN OIL
     Dosage: UNKNOWN
     Route: 042
  2. PROGESTERONE INJECTION (0750-01) [Suspect]
     Active Substance: PROGESTERONE
     Dosage: UNKNOWN
     Route: 023
  3. LEUPROLIDE ACETATE. [Suspect]
     Active Substance: LEUPROLIDE ACETATE
     Dosage: UNKNOWN
     Route: 065
  4. NORGESTIMATE-ETHINYL ESTRADIOL [Suspect]
     Active Substance: ETHINYL ESTRADIOL\NORGESTIMATE
     Dosage: 0.25MG/35 MICROGRAMS
     Route: 048
  5. TRANSDERMAL ESTRADIOL [Concomitant]
     Dosage: UNKNOWN
     Route: 062
  6. CORTICOSTEROIDS [Suspect]
     Active Substance: CORTICOSTEROID NOS
     Dosage: UNKNOWN
     Route: 042
  7. HISTAMINE-1 RECEPTOR ANTAGONIST [Suspect]
     Active Substance: UNSPECIFIED INGREDIENT
     Dosage: UNKNOWN
     Route: 065
  8. CONJUGATED EQUINE ESTROGENS [Suspect]
     Active Substance: ESTROGENS, CONJUGATED
     Dosage: UNKNOWN
     Route: 065
  9. VALACYCLOVIR [Concomitant]
     Active Substance: VALACYCLOVIR HYDROCHLORIDE
     Dosage: 1000 MG DAILY
     Route: 065

REACTIONS (5)
  - Incorrect route of product administration [Unknown]
  - Autoimmune dermatitis [Recovered/Resolved]
  - Condition aggravated [Recovered/Resolved]
  - Skin reaction [Unknown]
  - Product use in unapproved indication [Unknown]
